FAERS Safety Report 6229062-6 (Version None)
Quarter: 2009Q2

REPORT INFORMATION
  Report Type: 
  Country: None (occurrence: None)
  Receive Date: 20090611
  Receipt Date: 20090611
  Transmission Date: 20091009
  Serious: No
  Sender: FDA-Public Use
  Company Number: None

PATIENT

DRUGS (1)
  1. LEVETIRACETAM [Suspect]

REACTIONS (5)
  - ASTHENIA [None]
  - CONDITION AGGRAVATED [None]
  - CONVULSION [None]
  - HEADACHE [None]
  - TEMPERATURE INTOLERANCE [None]
